FAERS Safety Report 4661578-6 (Version None)
Quarter: 2005Q2

REPORT INFORMATION
  Report Type: 
  Country: None (occurrence: None)
  Receive Date: 20050502
  Receipt Date: 20050124
  Transmission Date: 20051028
  Serious: No
  Sender: FDA-Public Use
  Company Number: 200510271US

PATIENT
  Sex: Female

DRUGS (2)
  1. KETEK [Suspect]
     Indication: SINUSITIS
     Dosage: 400 (2 TABLETS) X 1 DOSE MG PO
     Route: 048
     Dates: start: 20041224
  2. KETEK [Suspect]
     Indication: TRACHEOBRONCHITIS
     Dosage: 400 (2 TABLETS) X 1 DOSE MG PO
     Route: 048
     Dates: start: 20041224

REACTIONS (3)
  - DIZZINESS [None]
  - VISION BLURRED [None]
  - VISUAL DISTURBANCE [None]
